FAERS Safety Report 8306723-6 (Version None)
Quarter: 2012Q2

REPORT INFORMATION
  Report Type: 
  Country: None (occurrence: None)
  Receive Date: 20120424
  Receipt Date: 20120416
  Transmission Date: 20120825
  Serious: Yes (Other)
  Sender: FDA-Public Use
  Company Number: US-BAYER-2011-123835

PATIENT
  Age: 16 Year
  Sex: Female
  Weight: 58.957 kg

DRUGS (4)
  1. YAZ [Suspect]
     Indication: CONTRACEPTION
     Dosage: UNK
     Dates: start: 20060101, end: 20070101
  2. ZANTAC [Concomitant]
     Dosage: UNK
     Dates: start: 20090111
  3. ANTACIDS [Concomitant]
     Dosage: UNK
     Dates: start: 20090111
  4. MULTIVITAMIN PREPARATION + MINERAL SUPPLEMENT [Concomitant]
     Dosage: 1,DAILY
     Dates: start: 20090203

REACTIONS (9)
  - ANXIETY [None]
  - GENERAL PHYSICAL HEALTH DETERIORATION [None]
  - INJURY [None]
  - CHOLECYSTITIS CHRONIC [None]
  - SCAR [None]
  - EMOTIONAL DISTRESS [None]
  - PAIN [None]
  - INSOMNIA [None]
  - GALLBLADDER DISORDER [None]
